FAERS Safety Report 8853278 (Version 1)
Quarter: 2012Q4

REPORT INFORMATION
  Report Type: 
  Country: DE (occurrence: DE)
  Receive Date: 20121022
  Receipt Date: 20121022
  Transmission Date: 20130627
  Serious: Yes (Other)
  Sender: FDA-Public Use
  Company Number: DE-UCBSA-069116

PATIENT
  Age: 52 Year
  Sex: Female

DRUGS (1)
  1. NEUPRO [Suspect]
     Indication: PARKINSON^S DISEASE
     Dosage: 8MG/24H + 2MG/24H
     Route: 062
     Dates: start: 201203

REACTIONS (1)
  - Rash vesicular [Not Recovered/Not Resolved]
